FAERS Safety Report 9985876 (Version 2)
Quarter: 2014Q2

REPORT INFORMATION
  Report Type: Spontaneous
  Country: DE (occurrence: DE)
  Receive Date: 20140307
  Receipt Date: 20140424
  Transmission Date: 20141212
  Serious: Yes (Hospitalization)
  Sender: FDA-Public Use
  Company Number: DE-UCBSA-113693

PATIENT
  Age: 44 Year
  Sex: Male

DRUGS (9)
  1. CIMZIA [Suspect]
     Indication: RHEUMATOID ARTHRITIS
     Dosage: 200 MG, FOR APPROXIAMATELY 1 YEAR
     Route: 058
  2. CIMZIA [Suspect]
     Indication: RHEUMATOID ARTHRITIS
     Route: 058
  3. MTX [Concomitant]
     Indication: RHEUMATOID ARTHRITIS
     Dosage: APPROX FOR 2 YEARS
  4. FOLIC ACID [Concomitant]
     Dosage: 5 MG
  5. VALDOXAN [Concomitant]
     Dosage: 0-0-1
  6. IBUPROFEN [Concomitant]
     Indication: PYREXIA
  7. TAVANIC [Concomitant]
  8. CEFUROXIME [Concomitant]
     Dosage: 1-0-1
  9. PERFALGAN [Concomitant]

REACTIONS (10)
  - Pyrexia [Recovering/Resolving]
  - Infection [Recovering/Resolving]
  - Chills [Recovering/Resolving]
  - Vomiting [Recovering/Resolving]
  - Nausea [Recovering/Resolving]
  - Depression [Unknown]
  - Decreased appetite [Unknown]
  - Headache [Unknown]
  - Cough [Unknown]
  - Fatigue [Unknown]
